FAERS Safety Report 21446036 (Version 1)
Quarter: 2022Q4

REPORT INFORMATION
  Report Type: Spontaneous
  Country: US (occurrence: None)
  Receive Date: 20221011
  Receipt Date: 20221011
  Transmission Date: 20230113
  Serious: No
  Sender: FDA-Public Use
  Company Number: None

PATIENT
  Age: 27 Year
  Sex: Female

DRUGS (12)
  1. TOUJEO [Suspect]
     Active Substance: INSULIN GLARGINE
     Indication: Type 1 diabetes mellitus
     Dosage: OTHER STRENGTH : MILLILITER PER UNI;?OTHER QUANTITY : 68 MILLILITERS/UNIT;?FREQUENCY : AT BEDTIME;?
     Route: 058
     Dates: start: 20220915, end: 20221007
  2. SINGULAIR [Concomitant]
     Active Substance: MONTELUKAST SODIUM
  3. CELEXA/CITALOPRAM [Concomitant]
  4. HUMALOG KWIKPEN [Concomitant]
     Active Substance: INSULIN LISPRO
  5. LANTUS SOLOSTAR [Concomitant]
     Active Substance: INSULIN GLARGINE
  6. PROAIR HFA [Concomitant]
     Active Substance: ALBUTEROL SULFATE
  7. VITAMIN D3 [Concomitant]
     Active Substance: CHOLECALCIFEROL
  8. VITAMIN B12 [Concomitant]
     Active Substance: CYANOCOBALAMIN
  9. VITAMIN C [Concomitant]
     Active Substance: ASCORBIC ACID
  10. MAGNESIUM [Concomitant]
     Active Substance: MAGNESIUM
  11. ZYRTEC [Concomitant]
     Active Substance: CETIRIZINE HYDROCHLORIDE
  12. CLARATIN [Concomitant]

REACTIONS (3)
  - Rash erythematous [None]
  - Rash macular [None]
  - Pruritus [None]

NARRATIVE: CASE EVENT DATE: 20220929
